FAERS Safety Report 10382248 (Version 2)
Quarter: 2014Q4

REPORT INFORMATION
  Report Type: Spontaneous
  Country: US (occurrence: US)
  Receive Date: 20140813
  Receipt Date: 20141027
  Transmission Date: 20150528
  Serious: Yes (Other)
  Sender: FDA-Public Use
  Company Number: US-TEVA-500868USA

PATIENT
  Sex: Female

DRUGS (3)
  1. COPAXONE [Suspect]
     Active Substance: GLATIRAMER ACETATE
     Route: 065
  2. AVONEX [Suspect]
     Active Substance: INTERFERON BETA-1A
     Route: 065
  3. XANAX [Suspect]
     Active Substance: ALPRAZOLAM
     Route: 065

REACTIONS (15)
  - Urinary tract infection [Unknown]
  - Loss of consciousness [Recovered/Resolved]
  - Stress [Unknown]
  - Pain [Unknown]
  - Seizure [Recovered/Resolved]
  - Road traffic accident [Unknown]
  - Optic neuritis [Unknown]
  - Injection site pain [Unknown]
  - Asthenia [Unknown]
  - Blindness unilateral [Unknown]
  - Injection site erythema [Unknown]
  - Pain [Unknown]
  - Cough [Unknown]
  - Liver function test abnormal [Unknown]
  - Nasopharyngitis [Unknown]

NARRATIVE: CASE EVENT DATE: 2014
